FAERS Safety Report 18642354 (Version 1)
Quarter: 2020Q4

REPORT INFORMATION
  Report Type: Spontaneous
  Country: US (occurrence: US)
  Receive Date: 20201218
  Receipt Date: 20201218
  Transmission Date: 20210114
  Serious: No
  Sender: FDA-Public Use
  Company Number: None

PATIENT
  Age: 68 Year
  Sex: Male
  Weight: 117.03 kg

DRUGS (1)
  1. COSENTYX [Suspect]
     Active Substance: SECUKINUMAB
     Indication: ANKYLOSING SPONDYLITIS
     Dosage: INJECT 300MG (2 PENS) SUBCUTANEOUSLY EVERY  WEEK FOR 5  WEEKS AS DIRECTED
     Route: 058
     Dates: start: 202011

REACTIONS (3)
  - Viral infection [None]
  - Diarrhoea [None]
  - Nausea [None]
